FAERS Safety Report 4277736-9 (Version None)
Quarter: 2004Q1

REPORT INFORMATION
  Report Type: 
  Country: None (occurrence: None)
  Receive Date: 20040123
  Receipt Date: 20031121
  Transmission Date: 20041129
  Serious: Yes (Life-Threatening)
  Sender: FDA-Public Use
  Company Number: FR-BRISTOL-MYERS SQUIBB COMPANY-12441341

PATIENT
  Age: 2 Year
  Sex: Male
  Weight: 15 kg

DRUGS (2)
  1. MUCOMYST PWDR OS 200 MG [Suspect]
     Indication: NASOPHARYNGITIS
     Route: 048
     Dates: start: 20031107, end: 20031107
  2. POLYDEXA [Suspect]
     Indication: EAR INFECTION
     Dates: start: 20031107, end: 20031107

REACTIONS (3)
  - ANGIONEUROTIC OEDEMA [None]
  - HYPERSENSITIVITY [None]
  - URTICARIA [None]
